FAERS Safety Report 24029880 (Version 1)
Quarter: 2024Q2

REPORT INFORMATION
  Report Type: Spontaneous
  Country: CN (occurrence: CN)
  Receive Date: 20240628
  Receipt Date: 20240628
  Transmission Date: 20240716
  Serious: Yes (Other)
  Sender: FDA-Public Use
  Company Number: CN-JNJFOC-20240653487

PATIENT
  Age: 20 Year
  Sex: Male

DRUGS (4)
  1. RISPERDAL [Suspect]
     Active Substance: RISPERIDONE
     Indication: Intellectual disability
     Dosage: 3ML/D
     Route: 065
  2. VALPROATE SODIUM [Concomitant]
     Active Substance: VALPROATE SODIUM
     Indication: Intellectual disability
     Dosage: L G/D
     Route: 065
  3. CHLORPROMAZINE HYDROCHLORIDE [Concomitant]
     Active Substance: CHLORPROMAZINE HYDROCHLORIDE
     Indication: Intellectual disability
     Dosage: 200 MG/D
     Route: 065
  4. OLANZAPINE [Concomitant]
     Active Substance: OLANZAPINE
     Indication: Intellectual disability
     Dosage: 20MG/D
     Route: 065

REACTIONS (4)
  - Sinus arrest [Unknown]
  - Arrhythmia [Unknown]
  - Off label use [Unknown]
  - Sinus bradycardia [Unknown]
